APPROVED DRUG PRODUCT: TRAZODONE HYDROCHLORIDE
Active Ingredient: TRAZODONE HYDROCHLORIDE
Strength: 150MG
Dosage Form/Route: TABLET;ORAL
Application: A071196 | Product #002 | TE Code: AB
Applicant: APOTEX INC
Approved: Apr 26, 1999 | RLD: No | RS: No | Type: RX